FAERS Safety Report 10081538 (Version 2)
Quarter: 2015Q1

REPORT INFORMATION
  Report Type: Spontaneous
  Country: US (occurrence: US)
  Receive Date: 20140416
  Receipt Date: 20150325
  Transmission Date: 20150720
  Serious: Yes (Hospitalization, Other)
  Sender: FDA-Public Use
  Company Number: US-PFIZER INC-2014106575

PATIENT
  Age: 51 Year
  Sex: Female
  Weight: 145 kg

DRUGS (4)
  1. LYRICA [Suspect]
     Active Substance: PREGABALIN
     Indication: NEUROPATHY PERIPHERAL
  2. AMARYL [Concomitant]
     Active Substance: GLIMEPIRIDE
     Indication: DIABETES MELLITUS
     Dosage: 4 MG, 2X/DAY
  3. TENORETIC [Concomitant]
     Active Substance: ATENOLOL\CHLORTHALIDONE
     Indication: HYPERTENSION
     Dosage: 50/25, DAILY
  4. LYRICA [Suspect]
     Active Substance: PREGABALIN
     Indication: NEUROPATHIC ARTHROPATHY
     Dosage: 150 MG, 3X/DAY
     Dates: start: 201006

REACTIONS (5)
  - Wound [Not Recovered/Not Resolved]
  - Wound infection [Unknown]
  - Staphylococcal infection [Unknown]
  - Escherichia infection [Unknown]
  - Pain in extremity [Unknown]

NARRATIVE: CASE EVENT DATE: 2014
